FAERS Safety Report 7002187-3 (Version None)
Quarter: 2010Q3

REPORT INFORMATION
  Report Type: 
  Country: None (occurrence: None)
  Receive Date: 20100920
  Receipt Date: 20100908
  Transmission Date: 20110219
  Serious: Yes (Hospitalization)
  Sender: FDA-Public Use
  Company Number: FR-PFIZER INC-2010113117

PATIENT
  Age: 63 Year
  Sex: Male

DRUGS (14)
  1. ADRIBLASTINE [Suspect]
     Dosage: 96 MG, SINGLE
     Route: 042
     Dates: start: 20100518
  2. MABTHERA [Suspect]
     Dosage: 720 MG, SINGLE
     Route: 042
     Dates: start: 20100518
  3. ENDOXAN [Suspect]
     Dosage: 1440 MG, SINGLE
     Route: 042
     Dates: start: 20100518
  4. VINCRISTINE [Suspect]
     Dosage: 2 MG, SINGLE
     Route: 042
     Dates: start: 20100518
  5. DIAMICRON [Concomitant]
     Indication: TYPE 2 DIABETES MELLITUS
  6. GLUCOPHAGE [Concomitant]
     Indication: TYPE 2 DIABETES MELLITUS
     Dosage: UNK
  7. BISOPROLOL FUMARATE [Concomitant]
     Dosage: 2.5 MG, 1X/DAY
  8. IRBESARTAN [Concomitant]
     Dosage: 300 MG, 1X/DAY
  9. KARDEGIC [Concomitant]
     Dosage: 75 UNK, 1XDAY
  10. CRESTOR [Concomitant]
     Dosage: 20 MG, 1X/DAY
  11. ZYLORIC ^GLAXO WELLCOME^ [Concomitant]
     Dosage: 300 MG, 1X/DAY
  12. AMLODIPINE [Concomitant]
     Dosage: 1 DF, 1X/DAY
  13. FORADIL [Concomitant]
     Dosage: 1 DF, 2X/DAY
     Route: 055
  14. SOLU-MEDROL [Concomitant]
     Dosage: 76.8 MG, CYCLIC
     Dates: start: 20100518

REACTIONS (1)
  - FEBRILE BONE MARROW APLASIA [None]
